FAERS Safety Report 9409576 (Version 3)
Quarter: 2013Q2

REPORT INFORMATION
  Report Type: Spontaneous
  Country: US (occurrence: US)
  Receive Date: 20130424
  Receipt Date: 20130612
  Transmission Date: 20140414
  Serious: Yes (Hospitalization, Other)
  Sender: FDA-Public Use
  Company Number: JPI-P-031187

PATIENT
  Age: 58 Year
  Sex: Female
  Weight: 87.54 kg

DRUGS (10)
  1. XYREM (500 MG/ML SOLUTION)(SODIUM OXYBATE) [Suspect]
     Indication: NARCOLEPSY
     Dosage: 4.5 GM (2.25 GM, 2 IN 1 D)
     Route: 048
     Dates: start: 20130317, end: 2013
  2. XYREM (500 MG/ML SOLUTION)(SODIUM OXYBATE) [Suspect]
     Indication: SOMNOLENCE
     Dosage: 4.5 GM (2.25 GM, 2 IN 1 D)
     Route: 048
     Dates: start: 20130317, end: 2013
  3. LIRAGLUTIDE [Suspect]
     Indication: DIABETES MELLITUS
     Route: 058
     Dates: end: 201304
  4. PRAMIPEXOLE [Concomitant]
  5. SERTRALINE HYDROCHLORIDE [Concomitant]
  6. METFORMIN [Concomitant]
  7. PRAVASTATIN [Concomitant]
  8. AMPHETAMINE, DEXTROAMPHETAMINE MIXED SALTS [Concomitant]
  9. MODAFINIL [Concomitant]
  10. INSULIN DETEMIR [Concomitant]

REACTIONS (5)
  - Swelling [None]
  - Blood glucose increased [None]
  - Pancreatitis [None]
  - Diarrhoea [None]
  - Weight decreased [None]
